FAERS Safety Report 22144019 (Version 2)
Quarter: 2023Q1

REPORT INFORMATION
  Report Type: Spontaneous
  Country: GB (occurrence: GB)
  Receive Date: 20230327
  Receipt Date: 20230331
  Transmission Date: 20230417
  Serious: Yes (Death, Hospitalization, Other)
  Sender: FDA-Public Use
  Company Number: GB-GILEAD-2023-0621583

PATIENT
  Age: 58 Year
  Sex: Male

DRUGS (1)
  1. EPCLUSA [Suspect]
     Active Substance: SOFOSBUVIR\VELPATASVIR
     Indication: Product used for unknown indication
     Dosage: 400/100 MG
     Route: 065
     Dates: start: 20230113

REACTIONS (9)
  - Acute kidney injury [Fatal]
  - Coagulopathy [Fatal]
  - Hepatic cirrhosis [Fatal]
  - Blood bilirubin increased [Fatal]
  - Somnolence [Fatal]
  - Hepatitis C RNA [Fatal]
  - Hepatocellular carcinoma [Fatal]
  - Anaemia [Fatal]
  - Constipation [Unknown]
